FAERS Safety Report 7414467-8 (Version None)
Quarter: 2011Q2

REPORT INFORMATION
  Report Type: 
  Country: None (occurrence: None)
  Receive Date: 20110414
  Receipt Date: 20110401
  Transmission Date: 20111010
  Serious: Yes (Other)
  Sender: FDA-Public Use
  Company Number: FR-JNJFOC-20110401869

PATIENT
  Sex: Male

DRUGS (13)
  1. CEFTRIAXONE [Suspect]
     Indication: PRODUCT USED FOR UNKNOWN INDICATION
     Route: 042
     Dates: start: 20101220, end: 20101222
  2. IKOREL [Concomitant]
     Route: 048
  3. AMIODARONE [Concomitant]
     Indication: ATRIAL FIBRILLATION
     Route: 048
  4. BUDESONIDE [Suspect]
     Indication: PRODUCT USED FOR UNKNOWN INDICATION
     Route: 055
  5. TAVANIC [Suspect]
     Indication: PRODUCT USED FOR UNKNOWN INDICATION
     Route: 048
     Dates: start: 20101220, end: 20101224
  6. FORTUM [Suspect]
     Indication: PRODUCT USED FOR UNKNOWN INDICATION
     Route: 042
     Dates: start: 20101222, end: 20101231
  7. VENTOLIN [Concomitant]
     Indication: CHRONIC OBSTRUCTIVE PULMONARY DISEASE
     Route: 055
  8. ELISOR [Concomitant]
     Route: 048
  9. PERMIXON [Concomitant]
     Route: 048
  10. HALDOL [Suspect]
     Indication: PRODUCT USED FOR UNKNOWN INDICATION
     Route: 058
     Dates: start: 20101221, end: 20101231
  11. COVERSYL [Concomitant]
     Indication: HYPERTENSION
  12. IPRATROPIUM BROMIDE [Suspect]
     Indication: PRODUCT USED FOR UNKNOWN INDICATION
     Route: 065
  13. METHYLPREDNISOLONE [Suspect]
     Indication: PRODUCT USED FOR UNKNOWN INDICATION
     Route: 042
     Dates: start: 20101223, end: 20101231

REACTIONS (2)
  - CONFUSIONAL STATE [None]
  - ABNORMAL BEHAVIOUR [None]
